FAERS Safety Report 6005437-5 (Version None)
Quarter: 2008Q4

REPORT INFORMATION
  Report Type: 
  Country: None (occurrence: None)
  Receive Date: 20081217
  Receipt Date: 20081211
  Transmission Date: 20090506
  Serious: Yes (Hospitalization)
  Sender: FDA-Public Use
  Company Number: US-JNJFOC-20081203373

PATIENT
  Sex: Female
  Weight: 46.72 kg

DRUGS (9)
  1. FENTANYL TRANSDERMAL SYSTEM [Suspect]
     Route: 062
  2. FENTANYL TRANSDERMAL SYSTEM [Suspect]
     Indication: COMPLEX REGIONAL PAIN SYNDROME
     Route: 062
  3. XANAX [Concomitant]
     Indication: ANXIETY
     Route: 048
  4. TEMAZEPAM [Concomitant]
     Indication: SLEEP DISORDER
     Route: 048
  5. SOMA [Concomitant]
     Indication: MUSCLE SPASMS
     Route: 048
  6. ROXICODONE [Concomitant]
     Indication: PAIN
     Dosage: 15-30MG/1-2 EVERY 3HOURS
     Route: 048
  7. CLONIDINE [Concomitant]
     Indication: SLEEP DISORDER
     Route: 048
  8. ASPIRIN [Concomitant]
     Indication: TRANSIENT ISCHAEMIC ATTACK
     Route: 048
  9. WELLBUTRIN XL [Concomitant]
     Indication: ANXIETY
     Route: 048

REACTIONS (10)
  - CONVULSION [None]
  - DELUSION [None]
  - DRUG PRESCRIBING ERROR [None]
  - FALSE POSITIVE LABORATORY RESULT [None]
  - HAND DEFORMITY [None]
  - LABORATORY TEST ABNORMAL [None]
  - LOSS OF CONSCIOUSNESS [None]
  - TOOTH FRACTURE [None]
  - TREATMENT NONCOMPLIANCE [None]
  - WEIGHT DECREASED [None]
